FAERS Safety Report 24606065 (Version 1)
Quarter: 2024Q4

REPORT INFORMATION
  Report Type: Report from Study
  Country: US (occurrence: US)
  Receive Date: 20241112
  Receipt Date: 20241112
  Transmission Date: 20250115
  Serious: Yes (Other)
  Sender: ABBVIE
  Company Number: US-ABBVIE-5994786

PATIENT
  Age: 80 Year
  Sex: Female

DRUGS (1)
  1. UBRELVY [Suspect]
     Active Substance: UBROGEPANT
     Indication: Product used for unknown indication
     Route: 048

REACTIONS (4)
  - Rehabilitation therapy [Unknown]
  - Concussion [Recovered/Resolved]
  - Cerebral disorder [Unknown]
  - Concussion [Unknown]

NARRATIVE: CASE EVENT DATE: 20240901
